FAERS Safety Report 24436536 (Version 2)
Quarter: 2024Q4

REPORT INFORMATION
  Report Type: Spontaneous
  Country: US (occurrence: US)
  Receive Date: 20241015
  Receipt Date: 20241015
  Transmission Date: 20250114
  Serious: Yes (Other)
  Sender: AMGEN
  Company Number: US-AMGEN-USASP2024199896

PATIENT
  Age: 72 Year
  Sex: Male

DRUGS (7)
  1. RITUXIMAB [Suspect]
     Active Substance: RITUXIMAB
     Indication: Central nervous system lymphoma
     Dosage: 6 CYCLES
     Route: 065
  2. PREDNISONE [Suspect]
     Active Substance: PREDNISONE
     Indication: Optic ischaemic neuropathy
     Dosage: 60 MILLIGRAM
     Route: 065
  3. PREDNISONE [Suspect]
     Active Substance: PREDNISONE
     Dosage: TAPER
     Route: 065
  4. METHOTREXATE [Concomitant]
     Active Substance: METHOTREXATE
  5. PROCARBAZINE [Concomitant]
     Active Substance: PROCARBAZINE
  6. VINCRISTINE [Concomitant]
     Active Substance: VINCRISTINE
  7. CYTARABINE [Concomitant]
     Active Substance: CYTARABINE
     Dosage: 2 CYCLES

REACTIONS (2)
  - Central nervous system lymphoma [Recovering/Resolving]
  - Therapeutic response unexpected [Unknown]
